FAERS Safety Report 9819648 (Version 1)
Quarter: 2014Q1

REPORT INFORMATION
  Report Type: Spontaneous
  Country: US (occurrence: None)
  Receive Date: 20140113
  Receipt Date: 20140113
  Transmission Date: 20141002
  Serious: Yes (Death)
  Sender: FDA-Public Use
  Company Number: USW201312-000166

PATIENT
  Age: 63 Year
  Sex: Female

DRUGS (1)
  1. APOKYN [Suspect]
     Indication: PARKINSON^S DISEASE

REACTIONS (1)
  - Cerebrovascular accident [None]
